FAERS Safety Report 23367856 (Version 1)
Quarter: 2024Q1

REPORT INFORMATION
  Report Type: Spontaneous
  Country: US (occurrence: US)
  Receive Date: 20240104
  Receipt Date: 20240104
  Transmission Date: 20240410
  Serious: Yes (Hospitalization, Other)
  Sender: FDA-Public Use
  Company Number: US-AUROBINDO-AUR-APL-2023-081694

PATIENT
  Age: 41 Year
  Sex: Male

DRUGS (2)
  1. NALOXONE HYDROCHLORIDE [Suspect]
     Active Substance: NALOXONE HYDROCHLORIDE
     Indication: Product used for unknown indication
     Dosage: 2 MILLIGRAM
     Route: 030
  2. FENTANYL [Suspect]
     Active Substance: FENTANYL\FENTANYL CITRATE
     Indication: Product used for unknown indication
     Dosage: UNK

REACTIONS (6)
  - Respiratory failure [Recovered/Resolved]
  - Pulmonary alveolar haemorrhage [Unknown]
  - Tachycardia [Unknown]
  - Tachypnoea [Recovered/Resolved]
  - Leukocytosis [Unknown]
  - Haemoptysis [Recovered/Resolved]
